FAERS Safety Report 6749737-X (Version None)
Quarter: 2010Q2

REPORT INFORMATION
  Report Type: 
  Country: None (occurrence: None)
  Receive Date: 20100601
  Receipt Date: 20100521
  Transmission Date: 20101027
  Serious: Yes (Disabling)
  Sender: FDA-Public Use
  Company Number: JP-ASTRAZENECA-2010SE23871

PATIENT
  Age: 47 Year
  Sex: Female

DRUGS (2)
  1. XYLOCAINE [Suspect]
     Indication: PAIN MANAGEMENT
     Dosage: 1.3 ML/H, MIXTURE OF XYLOCAINE 189 ML AND MORPHINE 35 ML
     Route: 058
     Dates: start: 20100316, end: 20100430
  2. MORPHINE HYDROCHLORIDE [Suspect]
     Indication: PAIN MANAGEMENT
     Dosage: 1.3 ML/H, MIXTURE OF XYLOCAINE 189 ML AND MORPHINE 35 ML
     Route: 058
     Dates: start: 20100316, end: 20100510

REACTIONS (1)
  - SKIN NECROSIS [None]
